FAERS Safety Report 6485084-1 (Version None)
Quarter: 2009Q4

REPORT INFORMATION
  Report Type: 
  Country: None (occurrence: None)
  Receive Date: 20091209
  Receipt Date: 20090616
  Transmission Date: 20100525
  Serious: No
  Sender: FDA-Public Use
  Company Number: US-AMGEN-KDL351876

PATIENT
  Sex: Male

DRUGS (1)
  1. ENBREL [Suspect]
     Indication: PSORIATIC ARTHROPATHY

REACTIONS (6)
  - ABDOMINAL PAIN [None]
  - FATIGUE [None]
  - FEELING COLD [None]
  - INSOMNIA [None]
  - PARAESTHESIA [None]
  - STRESS [None]
